FAERS Safety Report 9506989 (Version 1)
Quarter: 2013Q3

REPORT INFORMATION
  Report Type: Spontaneous
  Country: US (occurrence: US)
  Receive Date: 20130909
  Receipt Date: 20130909
  Transmission Date: 20140515
  Serious: Yes (Hospitalization, Other)
  Sender: FDA-Public Use
  Company Number: US-BAYER-2013-099090

PATIENT
  Age: 53 Year
  Sex: Female

DRUGS (15)
  1. YAZ [Suspect]
  2. YASMIN [Suspect]
  3. MAXALT [Concomitant]
     Indication: MIGRAINE
     Dosage: 10 MG, UNK
  4. METOPROLOL RETARD [Concomitant]
     Dosage: 50 MG, UNK
  5. CITALOPRAM [Concomitant]
     Dosage: 40 MG, UNK
  6. ZOLPIDEM [Concomitant]
     Dosage: 10 MG, UNK
  7. CLOTRIMAZOLE W/BETAMETHASONE DIPROPIONAT [Concomitant]
  8. CLONAZEPAM [Concomitant]
     Dosage: 0.05 MG, UNK
  9. OMEPRAZOLE [Concomitant]
     Dosage: 20 MG, UNK
  10. VITAMIN D [Concomitant]
     Dosage: 1.25 MG, UNK
  11. AMBIEN CR [Concomitant]
     Dosage: 12.5 MG, UNK
  12. CELEXA [Concomitant]
     Dosage: 20 MG, UNK
  13. TOPROL XL [Concomitant]
     Dosage: 40 MG, UNK
  14. LIPITOR [Concomitant]
     Indication: HYPERCHOLESTEROLAEMIA
     Dosage: 10 MG, UNK
  15. KLONOPIN [Concomitant]

REACTIONS (3)
  - Pulmonary embolism [Recovered/Resolved]
  - Deep vein thrombosis [Recovered/Resolved]
  - Thrombophlebitis superficial [None]
